FAERS Safety Report 10575904 (Version 2)
Quarter: 2014Q4

REPORT INFORMATION
  Report Type: Spontaneous
  Country: BR (occurrence: BR)
  Receive Date: 20141111
  Receipt Date: 20141111
  Transmission Date: 20150529
  Serious: Yes (Other)
  Sender: FDA-Public Use
  Company Number: BR-BAYER-2014-006734

PATIENT
  Age: 37 Year
  Sex: Female

DRUGS (1)
  1. MIRANOVA [Suspect]
     Active Substance: ETHINYL ESTRADIOL\LEVONORGESTREL
     Indication: CONTRACEPTION
     Dosage: 1 DF, QD
     Route: 048
     Dates: start: 201308

REACTIONS (4)
  - Drug ineffective [None]
  - Pregnancy on oral contraceptive [Recovered/Resolved]
  - Gestational diabetes [Recovered/Resolved]
  - Cervix dystocia [None]

NARRATIVE: CASE EVENT DATE: 201311
